FAERS Safety Report 11626852 (Version 3)
Quarter: 2015Q4

REPORT INFORMATION
  Report Type: Spontaneous
  Country: US (occurrence: US)
  Receive Date: 20151013
  Receipt Date: 20151110
  Transmission Date: 20160304
  Serious: No
  Sender: FDA-Public Use
  Company Number: US-009507513-1510USA004212

PATIENT
  Age: 89 Year
  Sex: Male

DRUGS (3)
  1. LIPITOR [Concomitant]
     Active Substance: ATORVASTATIN CALCIUM
  2. METFORMIN [Concomitant]
     Active Substance: METFORMIN HYDROCHLORIDE
  3. PROVENTIL [Suspect]
     Active Substance: ALBUTEROL
     Indication: RESPIRATORY TRACT CONGESTION
     Dosage: 2 PUFFS  4 TIMES A DAY
     Route: 055
     Dates: start: 20150929, end: 20150929

REACTIONS (2)
  - Dizziness [Recovered/Resolved]
  - Swollen tongue [Recovered/Resolved]

NARRATIVE: CASE EVENT DATE: 20150929
